FAERS Safety Report 4293733-1 (Version None)
Quarter: 2004Q1

REPORT INFORMATION
  Report Type: 
  Country: None (occurrence: None)
  Receive Date: 20040212
  Receipt Date: 20011207
  Transmission Date: 20041129
  Serious: Yes (Other)
  Sender: FDA-Public Use
  Company Number: FR-GLAXOSMITHKLINE-B0133964A

PATIENT
  Age: 19 Year
  Sex: Female

DRUGS (3)
  1. LAMICTAL [Suspect]
     Indication: EPILEPSY
     Route: 048
     Dates: start: 19970101
  2. VALPROATE [Concomitant]
     Indication: EPILEPSY
     Route: 065
  3. URBANYL [Concomitant]
     Indication: EPILEPSY
     Dosage: 5MG PER DAY
     Route: 048

REACTIONS (12)
  - ACNE [None]
  - ASTHENIA [None]
  - CONVULSION [None]
  - DIPLOPIA [None]
  - EPILEPSY [None]
  - GAIT DISTURBANCE [None]
  - INFLAMMATION [None]
  - MENSTRUAL DISORDER [None]
  - PALLOR [None]
  - VERTIGO [None]
  - VISUAL DISTURBANCE [None]
  - VOMITING [None]
